FAERS Safety Report 4668830-9 (Version None)
Quarter: 2005Q2

REPORT INFORMATION
  Report Type: 
  Country: None (occurrence: None)
  Receive Date: 20050523
  Receipt Date: 20030409
  Transmission Date: 20051028
  Serious: Yes (Death, Life-Threatening, Hospitalization, Disabling, Congenital Anomaly, Other)
  Sender: FDA-Public Use
  Company Number: PH-2004-BP-03765RP

PATIENT
  Sex: Female

DRUGS (3)
  1. MICARDIS 40MG TABLETS [Suspect]
     Indication: HYPERTENSION
     Route: 048
     Dates: start: 20030301
  2. CATAPRES [Concomitant]
     Indication: HYPERTENSION
     Dates: start: 20030301
  3. APRESOLINE [Concomitant]
     Indication: HYPERTENSION
     Dates: start: 20030301

REACTIONS (2)
  - CEREBROVASCULAR ACCIDENT [None]
  - HAEMORRHAGE [None]
